FAERS Safety Report 8954077 (Version 2)
Quarter: 2013Q4

REPORT INFORMATION
  Report Type: Spontaneous
  Country: US (occurrence: US)
  Receive Date: 20121207
  Receipt Date: 20131203
  Transmission Date: 20140711
  Serious: Yes (Other)
  Sender: FDA-Public Use
  Company Number: US-BAYER-2012-125644

PATIENT
  Age: 30 Year
  Sex: Female
  Weight: 83.9 kg

DRUGS (4)
  1. MIRENA [Suspect]
     Indication: CONTRACEPTION
     Dosage: 20 MCG/24HR, CONT
     Route: 015
     Dates: start: 20100505, end: 20110509
  2. SEROQUEL [Concomitant]
     Indication: BIPOLAR DISORDER
     Dosage: 50 MG, QD
     Dates: start: 1995
  3. DEPAKOTE [Concomitant]
     Indication: BIPOLAR DISORDER
     Dosage: UNK
     Dates: start: 1995
  4. CELEXA [Concomitant]
     Dosage: 20 MG, UNK

REACTIONS (5)
  - Uterine perforation [None]
  - Injury [None]
  - Pain [None]
  - Emotional distress [None]
  - Inappropriate schedule of drug administration [None]
